FAERS Safety Report 5931302-5 (Version None)
Quarter: 2008Q4

REPORT INFORMATION
  Report Type: 
  Country: None (occurrence: None)
  Receive Date: 20081009
  Receipt Date: 20080722
  Transmission Date: 20090506
  Serious: Yes (Other)
  Sender: FDA-Public Use
  Company Number: PHEH2008US06597

PATIENT
  Sex: Female

DRUGS (3)
  1. ZOMETA [Suspect]
     Indication: OSTEOPOROSIS
     Dates: start: 20060101, end: 20060801
  2. ZOMETA [Suspect]
     Indication: RESORPTION BONE INCREASED
     Dates: start: 20060101, end: 20060801
  3. FOSAMAX [Suspect]
     Dates: start: 20031201, end: 20050901

REACTIONS (5)
  - ANXIETY [None]
  - DECREASED INTEREST [None]
  - INJURY [None]
  - OSTEONECROSIS [None]
  - PAIN [None]
